FAERS Safety Report 5568434-X (Version None)
Quarter: 2007Q4

REPORT INFORMATION
  Report Type: 
  Country: None (occurrence: None)
  Receive Date: 20071220
  Receipt Date: 20071217
  Transmission Date: 20080405
  Serious: Yes (Hospitalization, Other)
  Sender: FDA-Public Use
  Company Number: US-ELI_LILLY_AND_COMPANY-US200712003376

PATIENT
  Sex: Male

DRUGS (3)
  1. HUMULIN 70/30 [Suspect]
  2. RANITIDINE HCL [Concomitant]
  3. COUMADIN [Concomitant]

REACTIONS (4)
  - BACTERIAL INFECTION [None]
  - DEPRESSION [None]
  - PROSTATE CANCER [None]
  - RASH [None]
